FAERS Safety Report 4661352-0 (Version None)
Quarter: 2005Q2

REPORT INFORMATION
  Report Type: 
  Country: None (occurrence: None)
  Receive Date: 20050512
  Receipt Date: 20050505
  Transmission Date: 20051028
  Serious: Yes (Disabling)
  Sender: FDA-Public Use
  Company Number: 05-05-0768

PATIENT
  Age: 60 Year
  Sex: Female

DRUGS (2)
  1. PHENYTOIN SODIUM [Suspect]
     Dosage: 300MG ORAL
     Route: 048
  2. ERYTHROMYCIN [Suspect]
     Indication: INFECTION
     Dosage: 250MG X2QDS ORAL
     Route: 048
     Dates: start: 20050411, end: 20050413

REACTIONS (1)
  - DRUG LEVEL INCREASED [None]
